FAERS Safety Report 5653626-1 (Version None)
Quarter: 2008Q1

REPORT INFORMATION
  Report Type: 
  Country: None (occurrence: None)
  Receive Date: 20080306
  Receipt Date: 20080227
  Transmission Date: 20080703
  Serious: Yes (Other)
  Sender: FDA-Public Use
  Company Number: AU-ROCHE-548754

PATIENT
  Age: 78 Year
  Sex: Female
  Weight: 73 kg

DRUGS (7)
  1. CAPECITABINE [Suspect]
     Indication: COLON CANCER
     Dosage: PERCENTAGE (%) DOSE REDUCTION: 25 %. CAPECITABINE DOSE ALSO REPORTED AS: 1000 MG/M2 TWICE A DAY.
     Route: 048
     Dates: start: 20070704
  2. ATORVASTATIN CALCIUM [Concomitant]
     Indication: HEART DISEASE CONGENITAL
     Route: 048
  3. ASPIRIN [Concomitant]
     Route: 048
  4. ATACAND HCT [Concomitant]
     Indication: HYPERTENSION
     Route: 048
  5. LERCANIDIPINE [Concomitant]
     Indication: HYPERTENSION
     Route: 048
  6. LOPERAMIDE HCL [Concomitant]
     Route: 048
     Dates: start: 20070704, end: 20071224
  7. METOCLOPRAMIDE [Concomitant]
     Indication: ANTIEMETIC SUPPORTIVE CARE
     Route: 048
     Dates: start: 20070704, end: 20071224

REACTIONS (1)
  - MALIGNANT MELANOMA IN SITU [None]
